FAERS Safety Report 11830237 (Version 3)
Quarter: 2015Q4

REPORT INFORMATION
  Report Type: Spontaneous
  Country: US (occurrence: US)
  Receive Date: 20151214
  Receipt Date: 20151214
  Transmission Date: 20160305
  Serious: Yes (Disabling)
  Sender: FDA-Public Use
  Company Number: US-JNJFOC-20151108410

PATIENT
  Age: 42 Year
  Sex: Female
  Weight: 63.5 kg

DRUGS (8)
  1. PROGESTERONE. [Concomitant]
     Active Substance: PROGESTERONE
     Route: 065
  2. BIOTIN [Concomitant]
     Active Substance: BIOTIN
     Route: 065
  3. DHEA [Concomitant]
     Active Substance: PRASTERONE
     Route: 065
  4. LEVAQUIN [Suspect]
     Active Substance: LEVOFLOXACIN
     Indication: BRONCHITIS
     Route: 048
     Dates: start: 201012
  5. CYTOMEL [Concomitant]
     Active Substance: LIOTHYRONINE SODIUM
     Route: 065
  6. SYNTHROID [Concomitant]
     Active Substance: LEVOTHYROXINE SODIUM
     Route: 065
  7. ESTROGEN [Concomitant]
     Active Substance: ESTRONE\SUS SCROFA OVARY
     Route: 065
  8. VITAMINE D [Concomitant]
     Route: 065

REACTIONS (7)
  - Neuropathy peripheral [Unknown]
  - Eye pain [Unknown]
  - Hormone level abnormal [Unknown]
  - Abdominal pain upper [Unknown]
  - Tendonitis [Unknown]
  - Visual impairment [Unknown]
  - Premature menopause [Unknown]
